FAERS Safety Report 9708269 (Version 1)
Quarter: 2013Q4

REPORT INFORMATION
  Report Type: Report from Study
  Country: ES (occurrence: ES)
  Receive Date: 20131125
  Receipt Date: 20131125
  Transmission Date: 20140711
  Serious: Yes (Other)
  Sender: FDA-Public Use
  Company Number: ES-CELGENEUS-144-50794-13112176

PATIENT
  Sex: Male
  Weight: 73 kg

DRUGS (3)
  1. VIDAZA [Suspect]
     Indication: CHRONIC MYELOMONOCYTIC LEUKAEMIA
     Dosage: 75 MILLIGRAM/SQ. METER
     Route: 058
     Dates: start: 20120203, end: 20121028
  2. RED BLOOD CELLS [Concomitant]
     Indication: PRODUCT USED FOR UNKNOWN INDICATION
     Route: 065
  3. PLATELETS [Concomitant]
     Indication: PRODUCT USED FOR UNKNOWN INDICATION
     Route: 065

REACTIONS (1)
  - Toxicity to various agents [Unknown]
